FAERS Safety Report 7587407-9 (Version None)
Quarter: 2011Q3

REPORT INFORMATION
  Report Type: 
  Country: None (occurrence: None)
  Receive Date: 20110704
  Receipt Date: 20110628
  Transmission Date: 20111222
  Serious: Yes (Hospitalization, Other)
  Sender: FDA-Public Use
  Company Number: US-BRISTOL-MYERS SQUIBB COMPANY-15717507

PATIENT
  Age: 67 Year
  Sex: Female
  Weight: 51 kg

DRUGS (1)
  1. CYTOXAN [Suspect]
     Indication: HAEMATOPOIETIC STEM CELL MOBILISATION
     Route: 042
     Dates: start: 20101008, end: 20101008

REACTIONS (8)
  - PYREXIA [None]
  - NAUSEA [None]
  - CONFUSIONAL STATE [None]
  - INFECTION [None]
  - DEHYDRATION [None]
  - DECREASED APPETITE [None]
  - HYPONATRAEMIA [None]
  - NEUTROPENIA [None]
